FAERS Safety Report 9032385 (Version 2)
Quarter: 2014Q1

REPORT INFORMATION
  Report Type: Spontaneous
  Country: FR (occurrence: FR)
  Receive Date: 20130125
  Receipt Date: 20140317
  Transmission Date: 20141002
  Serious: Yes (Hospitalization, Other)
  Sender: FDA-Public Use
  Company Number: FR-BAXTER-2013BAX002489

PATIENT
  Age: 64 Year
  Sex: Male

DRUGS (7)
  1. KIOVIG, 100 MG/ML, SOLUTION POUR PERFUSION [Suspect]
     Indication: MULTIFOCAL MOTOR NEUROPATHY
     Route: 042
     Dates: start: 20120817, end: 20120821
  2. CONTRAMAL [Suspect]
     Indication: GOUT
     Route: 048
     Dates: start: 20120820, end: 20120822
  3. COLCHICINE [Suspect]
     Indication: GOUT
     Route: 048
     Dates: start: 20120820, end: 20120822
  4. BIPRETERAX [Suspect]
     Indication: HYPERTENSION
     Route: 048
  5. ALLOPURINOL [Concomitant]
     Indication: PRODUCT USED FOR UNKNOWN INDICATION
  6. VESICARE [Concomitant]
     Indication: PRODUCT USED FOR UNKNOWN INDICATION
  7. LOVENOX [Concomitant]
     Indication: PRODUCT USED FOR UNKNOWN INDICATION

REACTIONS (2)
  - Tongue oedema [Recovered/Resolved]
  - Tongue oedema [Unknown]
